FAERS Safety Report 5120912-3 (Version None)
Quarter: 2006Q4

REPORT INFORMATION
  Report Type: 
  Country: None (occurrence: None)
  Receive Date: 20061003
  Receipt Date: 20061003
  Transmission Date: 20070319
  Serious: Yes (Hospitalization, Disabling)
  Sender: FDA-Public Use
  Company Number: None

PATIENT
  Age: 69 Year
  Sex: Male
  Weight: 103 kg

DRUGS (1)
  1. TERAZOSIN HCL [Suspect]
     Dosage: 10MG BID PO
     Route: 048
     Dates: start: 20040416, end: 20060215

REACTIONS (1)
  - ORTHOSTATIC HYPOTENSION [None]
